FAERS Safety Report 24741345 (Version 1)
Quarter: 2024Q4

REPORT INFORMATION
  Report Type: Spontaneous
  Country: JP (occurrence: JP)
  Receive Date: 20241217
  Receipt Date: 20241217
  Transmission Date: 20250114
  Serious: Yes (Death, Other)
  Sender: UCB
  Company Number: JP-UCBJ-CD202412441UCBPHAPROD

PATIENT

DRUGS (1)
  1. BRIVIACT [Suspect]
     Active Substance: BRIVARACETAM
     Indication: Partial seizures
     Dosage: 25 MILLIGRAM, 2X/DAY (BID)
     Route: 048

REACTIONS (2)
  - Death [Fatal]
  - Therapeutic response decreased [Unknown]
